FAERS Safety Report 17298717 (Version 1)
Quarter: 2020Q1

REPORT INFORMATION
  Report Type: Spontaneous
  Country: US (occurrence: US)
  Receive Date: 20200121
  Receipt Date: 20200121
  Transmission Date: 20200409
  Serious: Yes (Other)
  Sender: FDA-Public Use
  Company Number: None

PATIENT
  Age: 11 Year
  Sex: Female
  Weight: 31.4 kg

DRUGS (1)
  1. METHIMAZOLE. [Suspect]
     Active Substance: METHIMAZOLE
     Indication: BASEDOW^S DISEASE
     Route: 048
     Dates: start: 20190927, end: 20191019

REACTIONS (8)
  - Arthralgia [None]
  - Rash pruritic [None]
  - Arthritis [None]
  - Pruritus [None]
  - Product dose omission [None]
  - Joint swelling [None]
  - Gait inability [None]
  - Mechanical urticaria [None]

NARRATIVE: CASE EVENT DATE: 20191019
